FAERS Safety Report 4431231-2 (Version None)
Quarter: 2004Q3

REPORT INFORMATION
  Report Type: 
  Country: None (occurrence: None)
  Receive Date: 20040817
  Receipt Date: 20040812
  Transmission Date: 20050211
  Serious: Yes (Hospitalization)
  Sender: FDA-Public Use
  Company Number: 200410543BNE

PATIENT
  Age: 80 Year
  Sex: Female

DRUGS (4)
  1. ASPIRIN [Suspect]
     Indication: TRANSIENT ISCHAEMIC ATTACK
     Dosage: 300 MG, TOTAL DAILY, ORAL
     Route: 048
     Dates: end: 20040721
  2. ADALAT [Concomitant]
  3. SIMVASTATIN [Concomitant]
  4. BENDROFLUAZIDE [Concomitant]

REACTIONS (3)
  - DIARRHOEA [None]
  - DUODENAL ULCER [None]
  - FAECES DISCOLOURED [None]
